FAERS Safety Report 16647933 (Version 6)
Quarter: 2019Q4

REPORT INFORMATION
  Report Type: Spontaneous
  Country: DE (occurrence: DE)
  Receive Date: 20190730
  Receipt Date: 20191210
  Transmission Date: 20200122
  Serious: Yes (Hospitalization, Other)
  Sender: FDA-Public Use
  Company Number: DE-MYLANLABS-2019M1070878

PATIENT
  Sex: Female
  Weight: 80 kg

DRUGS (11)
  1. CANDESARTAN. [Concomitant]
     Active Substance: CANDESARTAN
     Indication: PRODUCT USED FOR UNKNOWN INDICATION
     Dosage: UNK
  2. CODIOVAN [Concomitant]
     Active Substance: HYDROCHLOROTHIAZIDE\VALSARTAN
     Indication: PRODUCT USED FOR UNKNOWN INDICATION
     Dosage: 1 DOSAGE FORM, QD (1 DF, QD (IN THE MORNING))
     Route: 065
  3. NOVAMINSULFON-RATIOPHARM [Concomitant]
     Active Substance: METAMIZOLE
     Indication: PRODUCT USED FOR UNKNOWN INDICATION
     Dosage: 500 MG, PRN (UP TO 2 TABLETS 4TIMES PER DAY)
     Route: 065
  4. AMLODIPIN HEXAL                    /00972401/ [Concomitant]
     Active Substance: AMLODIPINE BESYLATE
     Indication: PRODUCT USED FOR UNKNOWN INDICATION
     Dosage: 5 MILLIGRAM, QD
     Route: 065
  5. PRADAXA [Concomitant]
     Active Substance: DABIGATRAN ETEXILATE MESYLATE
     Indication: PRODUCT USED FOR UNKNOWN INDICATION
     Dosage: 150 MG, BID (APPROXIMATELY STARTED IN 2015)
     Route: 065
     Dates: start: 2015
  6. VALSARTAN. [Suspect]
     Active Substance: VALSARTAN
     Indication: PRODUCT USED FOR UNKNOWN INDICATION
     Dosage: UNK (80 OT, UNK)
     Route: 065
     Dates: start: 20150527
  7. VALSARTAN. [Suspect]
     Active Substance: VALSARTAN
     Dosage: UNK UNK, QD (160/12.5MG ONCE DAILY)
     Route: 065
     Dates: start: 20180320
  8. VALSARTAN HEXAL COMP [Suspect]
     Active Substance: HYDROCHLOROTHIAZIDE\VALSARTAN
     Indication: PRODUCT USED FOR UNKNOWN INDICATION
     Dosage: 1 DOSAGE FORM, QD (1 DF (160 MG, 12.5 MG), QD)
     Route: 065
  9. VALSARTAN. [Suspect]
     Active Substance: VALSARTAN
     Indication: PRODUCT USED FOR UNKNOWN INDICATION
     Dosage: UNK UNK, QD (1 DOSE) (UNK UNK, QD (160/12.5MG ONCE DAILY))
     Route: 065
     Dates: start: 20150901, end: 20180320
  10. AMLODIPIN 1 A PHARMA [Concomitant]
     Active Substance: AMLODIPINE BESYLATE
     Indication: PRODUCT USED FOR UNKNOWN INDICATION
     Dosage: 5 MG, QD (APPROXIMATELY STARTED IN 2000)
     Route: 065
     Dates: start: 2000
  11. PANTOPRAZOL HEXAL [Concomitant]
     Active Substance: PANTOPRAZOLE
     Indication: PRODUCT USED FOR UNKNOWN INDICATION
     Dosage: 40 MILLIGRAM, QD
     Route: 065

REACTIONS (20)
  - Asthma [Unknown]
  - Renal cyst [Unknown]
  - Hypersensitivity [Unknown]
  - Goitre [Unknown]
  - Hepatic steatosis [Unknown]
  - Diverticulum intestinal [Unknown]
  - Haemorrhoids [Unknown]
  - Dyspnoea exertional [Unknown]
  - Haemorrhage [Unknown]
  - Rectal adenocarcinoma [Unknown]
  - Hyperuricaemia [Unknown]
  - Haematochezia [Unknown]
  - Spinal osteoarthritis [Unknown]
  - Granuloma [Unknown]
  - Allergic reaction to excipient [Unknown]
  - Cardiomegaly [Unknown]
  - Rash erythematous [Unknown]
  - Intestinal haemorrhage [Recovered/Resolved]
  - Proctitis [Unknown]
  - Urinary incontinence [Unknown]

NARRATIVE: CASE EVENT DATE: 201801
